FAERS Safety Report 9265891 (Version 1)
Quarter: 2013Q2

REPORT INFORMATION
  Report Type: Other
  Country: IT (occurrence: IT)
  Receive Date: 20130501
  Receipt Date: 20130501
  Transmission Date: 20140414
  Serious: Yes (Hospitalization)
  Sender: FDA-Public Use
  Company Number: IT-ACTAVIS-2013-07531

PATIENT
  Age: 85 Year
  Sex: Female

DRUGS (3)
  1. ALPRAZOLAM (UNKNOWN) [Suspect]
     Indication: PRODUCT USED FOR UNKNOWN INDICATION
     Dosage: 5 ML, SINGLE
     Route: 048
     Dates: start: 20130412
  2. TRITTICO [Concomitant]
     Indication: PRODUCT USED FOR UNKNOWN INDICATION
     Route: 065
  3. ATENOLOL [Concomitant]
     Indication: PRODUCT USED FOR UNKNOWN INDICATION
     Route: 065

REACTIONS (3)
  - Face injury [Recovering/Resolving]
  - Sopor [Recovering/Resolving]
  - Medication error [Recovering/Resolving]
